FAERS Safety Report 4452115-X (Version None)
Quarter: 2004Q3

REPORT INFORMATION
  Report Type: 
  Country: None (occurrence: None)
  Receive Date: 20040915
  Receipt Date: 20040915
  Transmission Date: 20050211
  Serious: Yes (Life-Threatening, Hospitalization)
  Sender: FDA-Public Use
  Company Number: None

PATIENT
  Sex: Female
  Weight: 139.2543 kg

DRUGS (4)
  1. AVASTIN [Suspect]
     Indication: COLON CANCER METASTATIC
     Dosage: 7.5 MG/KG IV Q 3 WK
     Route: 042
     Dates: start: 20040802
  2. AVASTIN [Suspect]
     Indication: COLON CANCER METASTATIC
     Dosage: 7.5 MG/KG IV Q 3 WK
     Route: 042
     Dates: start: 20040823
  3. OXALIPLATIN [Concomitant]
  4. XELODA [Concomitant]

REACTIONS (1)
  - MYOCARDIAL INFARCTION [None]
